FAERS Safety Report 26102086 (Version 2)
Quarter: 2025Q4

REPORT INFORMATION
  Report Type: Report from Study
  Country: US (occurrence: None)
  Receive Date: 20251128
  Receipt Date: 20251218
  Transmission Date: 20260118
  Serious: Yes (Hospitalization, Other)
  Sender: UCB
  Company Number: US-UCBSA-2025073933

PATIENT
  Age: 22 Year

DRUGS (1)
  1. BIMEKIZUMAB [Suspect]
     Active Substance: BIMEKIZUMAB
     Indication: Hidradenitis
     Dosage: 320 MILLIGRAM, EV 2 WEEKS(QOW)

REACTIONS (4)
  - Abscess drainage [Unknown]
  - Abscess [Recovered/Resolved]
  - Condition aggravated [Recovered/Resolved]
  - Sepsis [Recovered/Resolved]
